FAERS Safety Report 9902980 (Version 1)
Quarter: 2014Q1

REPORT INFORMATION
  Report Type: Report from Study
  Country: DE (occurrence: DE)
  Receive Date: 20140217
  Receipt Date: 20140217
  Transmission Date: 20141002
  Serious: Yes (Hospitalization)
  Sender: FDA-Public Use
  Company Number: PHHO2014DE002280

PATIENT
  Sex: 0

DRUGS (1)
  1. CERTICAN [Suspect]
     Indication: STEM CELL TRANSPLANT
     Dosage: 0.75 MG, BID
     Route: 048
     Dates: start: 20121114

REACTIONS (4)
  - Pancytopenia [Unknown]
  - General physical health deterioration [Unknown]
  - Pyrexia [Recovered/Resolved]
  - Infection [Recovered/Resolved]
